FAERS Safety Report 6297601-5 (Version None)
Quarter: 2009Q3

REPORT INFORMATION
  Report Type: 
  Country: None (occurrence: None)
  Receive Date: 20090805
  Receipt Date: 20090729
  Transmission Date: 20100115
  Serious: Yes (Hospitalization)
  Sender: FDA-Public Use
  Company Number: PHHY2009JP32407

PATIENT
  Age: 57 Year
  Sex: Female

DRUGS (1)
  1. VOLTAREN [Suspect]
     Indication: BACK PAIN
     Dosage: 2 DF DAILY
     Route: 054

REACTIONS (4)
  - ANAEMIA [None]
  - HYPOPROTEINAEMIA [None]
  - OEDEMA [None]
  - SMALL INTESTINE ULCER [None]
